FAERS Safety Report 22340856 (Version 1)
Quarter: 2023Q2

REPORT INFORMATION
  Report Type: Spontaneous
  Country: US (occurrence: US)
  Receive Date: 20230518
  Receipt Date: 20230518
  Transmission Date: 20230722
  Serious: Yes (Other)
  Sender: FDA-Public Use
  Company Number: US-TAIHOP-2023-003871

PATIENT
  Age: 78 Year
  Sex: Female
  Weight: 59.42 kg

DRUGS (1)
  1. LONSURF [Suspect]
     Active Substance: TIPIRACIL HYDROCHLORIDE\TRIFLURIDINE
     Indication: Colon cancer
     Dosage: FORM STRENGTH 15 MG AND 20 MG, CURRENT CYCLE UNKNOWN
     Route: 048
     Dates: start: 20220820

REACTIONS (4)
  - Kidney infection [Unknown]
  - Diarrhoea [Unknown]
  - Vomiting [Unknown]
  - Aortic disorder [Unknown]
